FAERS Safety Report 7593368-9 (Version None)
Quarter: 2011Q3

REPORT INFORMATION
  Report Type: 
  Country: None (occurrence: None)
  Receive Date: 20110706
  Receipt Date: 20110629
  Transmission Date: 20111222
  Serious: No
  Sender: FDA-Public Use
  Company Number: US-PFIZER INC-2011145572

PATIENT
  Sex: Female
  Weight: 85.3 kg

DRUGS (5)
  1. LYRICA [Suspect]
     Indication: NERVE INJURY
     Dosage: 50 MG, 1X/DAY
     Route: 048
     Dates: start: 20110627, end: 20110628
  2. LYRICA [Suspect]
     Indication: LIMB DISCOMFORT
  3. LISINOPRIL [Concomitant]
     Indication: HYPERTENSION
     Dosage: UNK
  4. REQUIP [Concomitant]
     Indication: RESTLESS LEGS SYNDROME
     Dosage: 5 MG, 1X/DAY
     Route: 048
  5. LYRICA [Suspect]
     Indication: INTERVERTEBRAL DISC DISORDER

REACTIONS (2)
  - PALPITATIONS [None]
  - ANXIETY [None]
